FAERS Safety Report 25255665 (Version 1)
Quarter: 2025Q2

REPORT INFORMATION
  Report Type: Spontaneous
  Country: US (occurrence: US)
  Receive Date: 20250430
  Receipt Date: 20250430
  Transmission Date: 20250717
  Serious: No
  Sender: Kenvue
  Company Number: US-KENVUE-20250405700

PATIENT

DRUGS (1)
  1. WOMENS ROGAINE UNSCENTED [Suspect]
     Active Substance: MINOXIDIL
     Indication: Trichorrhexis
     Route: 061

REACTIONS (3)
  - Insomnia [Not Recovered/Not Resolved]
  - Hair growth abnormal [Unknown]
  - Product use in unapproved indication [Unknown]
